FAERS Safety Report 24694119 (Version 2)
Quarter: 2024Q4

REPORT INFORMATION
  Report Type: Spontaneous
  Country: NL (occurrence: NL)
  Receive Date: 20241204
  Receipt Date: 20241218
  Transmission Date: 20250115
  Serious: Yes (Other)
  Sender: DR REDDYS
  Company Number: None

PATIENT
  Age: 74 Year
  Sex: Male

DRUGS (8)
  1. SUNITINIB [Suspect]
     Active Substance: SUNITINIB
     Indication: Metastatic renal cell carcinoma
     Dosage: 50MG/DAY
  2. PREDNISONE [Concomitant]
     Active Substance: PREDNISONE
     Indication: Metastatic renal cell carcinoma
  3. PREDNISONE [Concomitant]
     Active Substance: PREDNISONE
     Dosage: 80 MG/DAY
  4. ACETAMINOPHEN [Concomitant]
     Active Substance: ACETAMINOPHEN
     Indication: Metastatic renal cell carcinoma
     Dosage: 50MG/DAY
  5. PANTOPRAZOLE [Concomitant]
     Active Substance: PANTOPRAZOLE
     Indication: Metastatic renal cell carcinoma
     Dosage: 50MG/DAY
  6. PANTOPRAZOLE [Concomitant]
     Active Substance: PANTOPRAZOLE
     Dosage: 50MG/DAY
  7. PANTOPRAZOLE [Concomitant]
     Active Substance: PANTOPRAZOLE
     Dosage: 50MG/DAY
  8. PANTOPRAZOLE [Concomitant]
     Active Substance: PANTOPRAZOLE
     Dosage: 50MG/DAY

REACTIONS (3)
  - Vogt-Koyanagi-Harada disease [Recovering/Resolving]
  - Serous retinal detachment [Unknown]
  - Visual acuity reduced [Recovering/Resolving]
